FAERS Safety Report 5714591-1 (Version None)
Quarter: 2008Q2

REPORT INFORMATION
  Report Type: 
  Country: None (occurrence: None)
  Receive Date: 20080423
  Receipt Date: 20080415
  Transmission Date: 20081010
  Serious: Yes (Hospitalization)
  Sender: FDA-Public Use
  Company Number: A0703647B

PATIENT
  Sex: Female
  Weight: 3.2 kg

DRUGS (5)
  1. WELLBUTRIN XL [Suspect]
     Indication: DEPRESSION
     Dosage: 150MG PER DAY
     Dates: start: 20010101
  2. OMEGA 3 FATTY ACID [Concomitant]
  3. VITAMINS [Concomitant]
  4. PITOCIN [Concomitant]
  5. MAGNESIUM SULFATE [Concomitant]

REACTIONS (2)
  - DRUG EXPOSURE DURING PREGNANCY [None]
  - JAUNDICE NEONATAL [None]
